FAERS Safety Report 17658141 (Version 1)
Quarter: 2020Q2

REPORT INFORMATION
  Report Type: Spontaneous
  Country: US (occurrence: US)
  Receive Date: 20200411
  Receipt Date: 20200411
  Transmission Date: 20200713
  Serious: No
  Sender: FDA-Public Use
  Company Number: US-TEVA-2020-US-1220417

PATIENT
  Sex: Female
  Weight: 74.84 kg

DRUGS (2)
  1. PRAVASTATIN SODIUM TEVA [Suspect]
     Active Substance: PRAVASTATIN SODIUM
     Indication: BLOOD CHOLESTEROL
     Dosage: 10 MILLIGRAM DAILY;
     Route: 048
  2. PRAVASTATIN SODIUM TEVA [Suspect]
     Active Substance: PRAVASTATIN SODIUM
     Dosage: 20 MILLIGRAM DAILY;
     Route: 048

REACTIONS (1)
  - Burning sensation [Unknown]
